FAERS Safety Report 24595548 (Version 4)
Quarter: 2025Q4

REPORT INFORMATION
  Report Type: Report from Study
  Country: US (occurrence: US)
  Receive Date: 20241109
  Receipt Date: 20251223
  Transmission Date: 20260118
  Serious: Yes (Hospitalization, Other)
  Sender: ROCHE
  Company Number: US-ROCHE-3552667

PATIENT
  Age: 53 Year
  Sex: Female

DRUGS (41)
  1. CELLCEPT [Suspect]
     Active Substance: MYCOPHENOLATE MOFETIL
     Indication: Anti-neutrophil cytoplasmic antibody positive vasculitis
     Dosage: 2BID
     Route: 048
  2. CELLCEPT [Suspect]
     Active Substance: MYCOPHENOLATE MOFETIL
     Dosage: 500MG TABLET
     Route: 048
  3. RITUXIMAB [Suspect]
     Active Substance: RITUXIMAB
     Indication: Product used for unknown indication
     Route: 042
     Dates: start: 2017
  4. CLONAZEPAM [Suspect]
     Active Substance: CLONAZEPAM
     Indication: Product used for unknown indication
     Dosage: TAKE 0.5MG BY MOUTH IN THE MORNING AND 0.5MG BEFORE BEDTIME
     Route: 048
  5. albuterol 90 mcg/actuation 90 inhal inhaler [Concomitant]
     Dosage: INHALE PUFFS 2 EVERY 4 HOURS AS NEEDED FOR WHEEZING OR SHORTNESS OF BREATH- INHALATION
     Route: 055
     Dates: start: 20251028, end: 20251119
  6. alpha liopic acid 600 mg tab [Concomitant]
     Dosage: TAKE BY MOUTH IN THE MORNING
     Route: 048
  7. anastrozole (ARIMIDEX) 1 mg tablet [Concomitant]
     Route: 048
  8. VITAMIN C [Concomitant]
     Active Substance: ASCORBIC ACID
     Dosage: IN MORNING
     Route: 048
  9. VITAMIN C [Concomitant]
     Active Substance: ASCORBIC ACID
     Dosage: IN MORNING
     Route: 048
  10. BIOTIN 10000 MCG [Concomitant]
     Route: 048
  11. calcium carbonate/vitamin D3 (Calcium 600 + D,3, ORAL) [Concomitant]
     Dosage: IN MORNING
     Route: 048
  12. CEFTIN [Concomitant]
     Active Substance: CEFUROXIME AXETIL
     Route: 048
     Dates: start: 20250728, end: 20250808
  13. ZYRTEC [Concomitant]
     Active Substance: CETIRIZINE HYDROCHLORIDE
     Dosage: AT NIGHT
     Route: 048
  14. KLONOPIN [Concomitant]
     Active Substance: CLONAZEPAM
     Dosage: TAKE 0.5 MG BY MOUTH IN THE MORNING AND 0.5 MG AT BEDTIME
     Route: 048
  15. DEXILANT [Concomitant]
     Active Substance: DEXLANSOPRAZOLE
     Route: 048
     Dates: start: 20211109
  16. EPINEPHrine (EPIPEN) [Concomitant]
     Dosage: INJECTOR, NEEDED FOR ANAPHYLAXIS
     Route: 030
  17. PEPCID [Concomitant]
     Active Substance: FAMOTIDINE
     Route: 048
     Dates: start: 20240802
  18. FERROUS SULFATE [Concomitant]
     Active Substance: FERROUS SULFATE
     Dosage: MORNING, 325 MG
     Route: 048
  19. LASIX [Concomitant]
     Active Substance: FUROSEMIDE
     Route: 048
  20. ZINC 50 MG [Concomitant]
     Dosage: MORNING
     Route: 048
  21. VITAMIN E 1000 UNIT CAPSULE [Concomitant]
     Dosage: 2000 UNITS- MORNING
     Route: 048
     Dates: start: 20220217, end: 20251119
  22. VITAMIN B COMPLEX (B COMPLEX 1 ORAL) [Concomitant]
     Dosage: MORNING
     Route: 048
  23. Triamcinolone (KENALOG) 0.025% cream [Concomitant]
     Route: 061
     Dates: start: 20241014
  24. topiramate (Topamax) 100 mg tablet [Concomitant]
     Dosage: BEDTIME
     Route: 048
     Dates: start: 20250304, end: 20251119
  25. ROPINIROLE (REQUIP) 0.5 MG TABLET [Concomitant]
     Dosage: NIGHT
     Route: 048
     Dates: start: 20241120, end: 20251119
  26. RED YEAST RICE 600 MG [Concomitant]
     Route: 048
  27. Psyllium husk (METAMUCIL ORAL) [Concomitant]
     Dosage: MORNING
     Route: 048
  28. propylene glycol 0.6% [Concomitant]
     Dosage: 1 DROP MORNING
     Route: 047
  29. predniSONE 1 mg tablet [Concomitant]
     Dosage: TAKE 3-5 MG P.O AT 7 AM DAILY AS TOLERATED, DOUBLE THE DOSE AS DIRECTED FOR ACUTE ILLNESS.
     Route: 048
     Dates: start: 20240508, end: 20250902
  30. potassium chloride SA (KLOR-CON M20) 20 MEQ [Concomitant]
     Route: 048
     Dates: start: 20241230
  31. ONDANSETRON [Concomitant]
     Active Substance: ONDANSETRON
     Route: 048
     Dates: start: 20240520, end: 20250807
  32. mupirocin (BACTROBAN) 2% OINTEMENT [Concomitant]
     Dosage: APPLY TO SKIN BUMP
     Route: 061
     Dates: start: 20220128
  33. multivitamin-minerals-lutein (multivitamin 50 plus) [Concomitant]
     Dosage: ONCE IN DIALYSIS
     Route: 048
  34. montelukast (SINGULAIR) 10 mg tablet [Concomitant]
     Route: 048
     Dates: start: 20241120, end: 20251117
  35. Gabapentin 6 % [Concomitant]
     Dosage: APPLY TO AFFECTED AREA
     Dates: start: 20220407
  36. Amitriptyline 2 % [Concomitant]
     Dosage: APPLY TO AFFECTED AREA
     Dates: start: 20220407
  37. mirtazapine (REMERON) 45 MG TABLET [Concomitant]
     Dosage: NIGHT
     Route: 048
  38. memantine (NAMENDA) 10 MG TABLET [Concomitant]
     Route: 048
     Dates: start: 20250304, end: 20251119
  39. magnesium 250 MG [Concomitant]
     Dosage: EVERY OTHER DAY, NIGHT
     Route: 048
  40. hydrocortisone (solu-CORTEF Act-O-Vial, PF) 100 mg/2 [Concomitant]
     Dosage: FOR ADRENAL CRISIS, INCLUDE SYRINGE AND VIAL
     Route: 030
     Dates: start: 20250508, end: 20250902
  41. gabapentin (NEURONTIN) 600 mg [Concomitant]
     Dosage: TAKE 600 MG IN MORNING, AT NOON, AT EVENING AND BEDTIME
     Route: 048

REACTIONS (26)
  - Fatigue [Unknown]
  - Malaise [Unknown]
  - Muscle spasms [Unknown]
  - Generalised oedema [Unknown]
  - Urticaria [Unknown]
  - Urticarial vasculitis [Unknown]
  - Diarrhoea [Recovered/Resolved]
  - Dizziness [Recovered/Resolved]
  - Blood pressure increased [Unknown]
  - Obesity [Unknown]
  - Back pain [Unknown]
  - Pain [Unknown]
  - Osteoporosis [Unknown]
  - Adrenal insufficiency [Unknown]
  - Swelling [Unknown]
  - Off label use [Unknown]
  - Lip swelling [Unknown]
  - Mouth swelling [Unknown]
  - Neuropathy peripheral [Unknown]
  - Arthralgia [Unknown]
  - Nausea [Recovered/Resolved]
  - Vomiting [Recovered/Resolved]
  - Stress [Unknown]
  - Red blood cell sedimentation rate increased [Unknown]
  - C-reactive protein increased [Unknown]
  - Sinusitis [Unknown]

NARRATIVE: CASE EVENT DATE: 20210301
